FAERS Safety Report 6522083-5 (Version None)
Quarter: 2009Q4

REPORT INFORMATION
  Report Type: 
  Country: None (occurrence: None)
  Receive Date: 20091230
  Receipt Date: 20091226
  Transmission Date: 20100525
  Serious: Yes (Hospitalization, Disabling)
  Sender: FDA-Public Use
  Company Number: PHHO2009IT16106

PATIENT
  Sex: Female
  Weight: 60 kg

DRUGS (3)
  1. CERTICAN [Suspect]
     Indication: RENAL TRANSPLANT
     Dosage: 1.25-1.5 MG
     Route: 048
     Dates: start: 20091003
  2. NEORAL [Suspect]
     Dosage: 125 MG, QD
     Dates: start: 20091003
  3. DELTACORTENE [Suspect]
     Indication: RENAL TRANSPLANT

REACTIONS (2)
  - RASH ERYTHEMATOUS [None]
  - SKIN ULCER [None]
